FAERS Safety Report 7191566-X (Version None)
Quarter: 2010Q4

REPORT INFORMATION
  Report Type: 
  Country: None (occurrence: None)
  Receive Date: 20101223
  Receipt Date: 20100818
  Transmission Date: 20110411
  Serious: No
  Sender: FDA-Public Use
  Company Number: US-AMGEN-KDL432184

PATIENT

DRUGS (4)
  1. ENBREL [Suspect]
     Indication: PRODUCT USED FOR UNKNOWN INDICATION
     Dosage: 50 MG, QWK
     Route: 058
  2. TOCOPHEROL CONCENTRATE CAP [Concomitant]
     Dosage: 100 IU, UNK
  3. CYANOCOBALAMIN [Concomitant]
     Dosage: 250 A?G, UNK
  4. SAW PALMETTO [Concomitant]
     Dosage: UNK UNK, UNK

REACTIONS (1)
  - FATIGUE [None]
